FAERS Safety Report 24389794 (Version 2)
Quarter: 2024Q4

REPORT INFORMATION
  Report Type: Spontaneous
  Country: AU (occurrence: AU)
  Receive Date: 20241003
  Receipt Date: 20241028
  Transmission Date: 20250115
  Serious: Yes (Other)
  Sender: TEVA
  Company Number: AU-TEVA-VS-3248162

PATIENT
  Sex: Male

DRUGS (5)
  1. CLOPIDOGREL [Suspect]
     Active Substance: CLOPIDOGREL BISULFATE
     Indication: Carotid artery aneurysm
     Dosage: SCHEDULED FOR 1 WEEK AS DUAL ANTIPLATELET THERAPY WITH ASPIRIN
     Route: 065
  2. HEPARIN [Suspect]
     Active Substance: HEPARIN SODIUM
     Indication: Thrombosis prophylaxis
     Route: 042
  3. TIROFIBAN [Concomitant]
     Active Substance: TIROFIBAN
     Indication: Vascular stent thrombosis
     Route: 065
  4. ASPIRIN [Suspect]
     Active Substance: ASPIRIN
     Indication: Carotid artery aneurysm
     Dosage: SCHEDULED FOR 1 WEEK AS DUAL ANTIPLATELET THERAPY WITH CLOPIDOGREL
     Route: 065
  5. PRASUGREL [Suspect]
     Active Substance: PRASUGREL
     Indication: Vascular stent thrombosis
     Route: 065

REACTIONS (2)
  - Drug resistance [Unknown]
  - Drug ineffective [Unknown]
